FAERS Safety Report 8024551-6 (Version None)
Quarter: 2012Q1

REPORT INFORMATION
  Report Type: 
  Country: None (occurrence: None)
  Receive Date: 20120105
  Receipt Date: 20111229
  Transmission Date: 20120608
  Serious: Yes (Other)
  Sender: FDA-Public Use
  Company Number: US-SANOFI-AVENTIS-2011SA085731

PATIENT
  Age: 87 Year
  Sex: Female

DRUGS (2)
  1. PLAVIX [Suspect]
     Route: 048
  2. ALL OTHER THERAPEUTIC PRODUCTS [Concomitant]

REACTIONS (2)
  - CHEMOTHERAPY [None]
  - RADIOTHERAPY [None]
